FAERS Safety Report 8338151-1 (Version None)
Quarter: 2012Q2

REPORT INFORMATION
  Report Type: 
  Country: None (occurrence: None)
  Receive Date: 20120504
  Receipt Date: 20120425
  Transmission Date: 20120825
  Serious: Yes (Other)
  Sender: FDA-Public Use
  Company Number: JP-JNJFOC-20120202847

PATIENT
  Sex: Male

DRUGS (11)
  1. VITANEURIN [Concomitant]
     Indication: DIABETIC NEUROPATHY
     Route: 048
  2. INHIBACE [Concomitant]
     Indication: HYPERTENSION
     Route: 048
     Dates: start: 20111128
  3. ZYRTEC [Suspect]
     Indication: RHINITIS
     Route: 048
     Dates: start: 20111227, end: 20120110
  4. SITAGLIPTIN PHOSPHATE [Concomitant]
     Indication: DIABETES MELLITUS
     Route: 048
     Dates: start: 20110510
  5. FAMOTIDINE [Concomitant]
     Indication: GASTRIC ULCER
     Route: 048
  6. AMLODIPINE [Concomitant]
     Indication: HYPERTENSION
     Route: 048
  7. AMARYL [Concomitant]
     Indication: DIABETES MELLITUS
     Route: 048
     Dates: start: 20110510
  8. ZYRTEC [Suspect]
     Route: 048
  9. ALLOPURINOL [Concomitant]
     Indication: HYPERURICAEMIA
     Route: 048
  10. NEUQUINON [Concomitant]
     Indication: CARDIAC FAILURE CONGESTIVE
     Route: 048
  11. LYSOZYME HYDROCHLORIDE [Concomitant]
     Indication: SINUSITIS
     Route: 048

REACTIONS (5)
  - HEPATIC FUNCTION ABNORMAL [None]
  - LIVER FUNCTION TEST ABNORMAL [None]
  - WEIGHT INCREASED [None]
  - WRONG DRUG ADMINISTERED [None]
  - OEDEMA PERIPHERAL [None]
